FAERS Safety Report 11807943 (Version 1)
Quarter: 2015Q4

REPORT INFORMATION
  Report Type: Spontaneous
  Country: DE (occurrence: DE)
  Receive Date: 20151207
  Receipt Date: 20151207
  Transmission Date: 20160305
  Serious: Yes (Other)
  Sender: FDA-Public Use
  Company Number: DE-TEVA-613192GER

PATIENT
  Age: 1 Day
  Sex: Male

DRUGS (7)
  1. IBUPROFEN. [Concomitant]
     Active Substance: IBUPROFEN
     Indication: HEADACHE
     Dosage: 400 MG/D (AS REQUIRED)
     Route: 064
  2. VENLAFAXINE [Suspect]
     Active Substance: VENLAFAXINE HYDROCHLORIDE
     Indication: DEPRESSION
     Dosage: 75 MG/D / INITIALLY 37.5MG/D, INCREASING DOSAGE TO 75MG/D
     Route: 064
     Dates: start: 20141031, end: 20150726
  3. MEPTID [Concomitant]
     Active Substance: MEPTAZINOL HYDROCHLORIDE
     Indication: NEPHROLITHIASIS
     Route: 064
     Dates: start: 20150514, end: 20150515
  4. EUTHYROX 100 [Concomitant]
     Indication: HYPOTHYROIDISM
     Dosage: 100 MICROGRAM DAILY;
     Route: 064
     Dates: start: 20141031, end: 20150726
  5. FOLIO FORTE [Concomitant]
     Active Substance: FOLIC ACID\VITAMINS
     Indication: PROPHYLAXIS OF NEURAL TUBE DEFECT
     Dosage: .8 MILLIGRAM DAILY;
     Route: 064
     Dates: start: 20141031, end: 20150726
  6. PERFALGAN [Concomitant]
     Active Substance: ACETAMINOPHEN
     Indication: NEPHROLITHIASIS
     Route: 064
     Dates: start: 20150514, end: 20150515
  7. BUSCOPAN [Concomitant]
     Active Substance: BUTYLSCOPOLAMINE BROMIDE
     Indication: NEPHROLITHIASIS
     Route: 064
     Dates: start: 20150514, end: 20150515

REACTIONS (3)
  - Bradycardia neonatal [Recovered/Resolved]
  - Oxygen saturation decreased [Recovered/Resolved]
  - Foetal exposure during pregnancy [Unknown]

NARRATIVE: CASE EVENT DATE: 20150726
